FAERS Safety Report 15196374 (Version 1)
Quarter: 2018Q3

REPORT INFORMATION
  Report Type: Spontaneous
  Country: NL (occurrence: NL)
  Receive Date: 20180725
  Receipt Date: 20180725
  Transmission Date: 20181010
  Serious: Yes (Hospitalization)
  Sender: FDA-Public Use
  Company Number: NL-JNJFOC-20180730333

PATIENT
  Age: 62 Year
  Sex: Female

DRUGS (6)
  1. CALCIUM?D3 [Concomitant]
     Route: 065
     Dates: start: 201706
  2. STELARA [Suspect]
     Active Substance: USTEKINUMAB
     Indication: CROHN^S DISEASE
     Route: 058
     Dates: start: 20170601
  3. FENPROCOUMON [Concomitant]
     Active Substance: PHENPROCOUMON
     Route: 065
  4. FOLIUMZUUR [Concomitant]
     Active Substance: FOLIC ACID
     Route: 065
  5. RANITIDINE. [Concomitant]
     Active Substance: RANITIDINE
     Route: 065
  6. VITAMIN B12 [Concomitant]
     Active Substance: CYANOCOBALAMIN
     Route: 065

REACTIONS (3)
  - Acute myocardial infarction [Recovered/Resolved]
  - Product use issue [Unknown]
  - Off label use [Unknown]

NARRATIVE: CASE EVENT DATE: 201706
